FAERS Safety Report 9705724 (Version 1)
Quarter: 2013Q4

REPORT INFORMATION
  Report Type: Spontaneous
  Country: US (occurrence: US)
  Receive Date: 20131122
  Receipt Date: 20131122
  Transmission Date: 20140711
  Serious: No
  Sender: FDA-Public Use
  Company Number: US-GILEAD-2008-0017769

PATIENT
  Sex: Female
  Weight: 58.97 kg

DRUGS (24)
  1. LETAIRIS [Suspect]
     Indication: PULMONARY ARTERIAL HYPERTENSION
     Route: 048
     Dates: start: 20071017
  2. ZYRTEC [Concomitant]
     Route: 048
  3. VERAMYST [Concomitant]
     Dosage: AS DIRECTED
     Route: 045
  4. MEDROL [Concomitant]
     Dosage: AS DIRECTED
     Route: 048
  5. METOLAZONE [Concomitant]
     Dosage: AS DIRECTED
     Route: 048
  6. AMOXICILLIN [Concomitant]
     Dosage: AS DIRECTED
     Route: 048
  7. TRIAMTERENE [Concomitant]
     Route: 048
  8. DETROL LA [Concomitant]
     Route: 048
  9. CELEBREX [Concomitant]
     Route: 048
  10. TYLENOL ARTHRITIS [Concomitant]
     Route: 048
  11. CALCITRIOL [Concomitant]
     Route: 048
  12. NORVASC [Concomitant]
     Route: 048
  13. TRICOR [Concomitant]
     Route: 048
  14. ACTONEL [Concomitant]
     Route: 048
  15. PREVACID [Concomitant]
     Route: 048
  16. PHILLIPS MOM [Concomitant]
     Route: 048
  17. PLAVIX [Concomitant]
     Route: 048
  18. GLUCOSAMINE [Concomitant]
     Route: 048
  19. VASOTEC [Concomitant]
     Route: 048
  20. ASPIRIN [Concomitant]
     Route: 048
  21. IRON [Concomitant]
     Route: 048
  22. CLONIDINE [Concomitant]
     Route: 048
  23. PROZAC [Concomitant]
     Route: 048
  24. MOTILIUM [Concomitant]
     Route: 048

REACTIONS (3)
  - Epistaxis [None]
  - Oedema [None]
  - Dyspnoea [None]
